FAERS Safety Report 6589546-8 (Version None)
Quarter: 2010Q1

REPORT INFORMATION
  Report Type: 
  Country: None (occurrence: None)
  Receive Date: 20100212
  Receipt Date: 20100202
  Transmission Date: 20100710
  Serious: Yes (Disabling)
  Sender: FDA-Public Use
  Company Number: OSCN-NO-0604S-0105

PATIENT
  Age: 47 Year
  Sex: Female

DRUGS (1)
  1. OMNISCAN [Suspect]
     Indication: DRUG USE FOR UNKNOWN INDICATION
     Dosage: 30 ML, SINGLE DOSE, I.V.
     Route: 042
     Dates: start: 20050817, end: 20050817

REACTIONS (12)
  - ARTHRALGIA [None]
  - BACK PAIN [None]
  - FUNGAL INFECTION [None]
  - GAIT DISTURBANCE [None]
  - MALAISE [None]
  - NEPHROGENIC SYSTEMIC FIBROSIS [None]
  - OEDEMA PERIPHERAL [None]
  - PAIN IN EXTREMITY [None]
  - PARAESTHESIA [None]
  - PIGMENTATION DISORDER [None]
  - PRURITUS [None]
  - SKIN DISORDER [None]
